FAERS Safety Report 24192947 (Version 2)
Quarter: 2024Q3

REPORT INFORMATION
  Report Type: Report from Study
  Country: US (occurrence: US)
  Receive Date: 20240809
  Receipt Date: 20240904
  Transmission Date: 20241017
  Serious: Yes (Hospitalization)
  Sender: ROCHE
  Company Number: US-ROCHE-10000049461

PATIENT
  Age: 66 Year
  Sex: Male
  Weight: 109.77 kg

DRUGS (2)
  1. OCREVUS [Suspect]
     Active Substance: OCRELIZUMAB
     Indication: Secondary progressive multiple sclerosis
     Route: 042
  2. OCREVUS [Suspect]
     Active Substance: OCRELIZUMAB
     Indication: Relapsing-remitting multiple sclerosis
     Route: 042

REACTIONS (6)
  - COVID-19 [Recovered/Resolved]
  - Colitis [Recovered/Resolved]
  - Mobility decreased [Not Recovered/Not Resolved]
  - Trigeminal neuralgia [Recovered/Resolved]
  - Hair disorder [Unknown]
  - Blood test abnormal [Unknown]

NARRATIVE: CASE EVENT DATE: 20230101
